FAERS Safety Report 5077559-7 (Version None)
Quarter: 2006Q3

REPORT INFORMATION
  Report Type: 
  Country: None (occurrence: None)
  Receive Date: 20060810
  Receipt Date: 20060329
  Transmission Date: 20061208
  Serious: No
  Sender: FDA-Public Use
  Company Number: US-GLAXOSMITHKLINE-A0600628A

PATIENT
  Age: 17 Year
  Sex: Male

DRUGS (2)
  1. PAXIL [Suspect]
     Dosage: 20MG UNKNOWN
     Route: 048
     Dates: start: 20060201
  2. LUNESTA [Suspect]
     Dosage: 2MG AT NIGHT
     Route: 065
     Dates: start: 20060101

REACTIONS (3)
  - ATTENTION DEFICIT/HYPERACTIVITY DISORDER [None]
  - INSOMNIA [None]
  - SOMNOLENCE [None]
